FAERS Safety Report 16445504 (Version 2)
Quarter: 2019Q2

REPORT INFORMATION
  Report Type: Spontaneous
  Country: US (occurrence: US)
  Receive Date: 20190618
  Receipt Date: 20190625
  Transmission Date: 20190711
  Serious: Yes (Hospitalization)
  Sender: FDA-Public Use
  Company Number: US-PFIZER INC-2019256664

PATIENT
  Age: 81 Year
  Sex: Female

DRUGS (6)
  1. XGEVA [Suspect]
     Active Substance: DENOSUMAB
     Indication: BREAST CANCER FEMALE
     Dosage: UNK (EVERY 3 MONTHS)
  2. FASLODEX [Suspect]
     Active Substance: FULVESTRANT
     Indication: HEPATOCELLULAR CARCINOMA
  3. FASLODEX [Suspect]
     Active Substance: FULVESTRANT
     Indication: BREAST CANCER FEMALE
     Dosage: 500 MG, MONTHLY
  4. IBRANCE [Suspect]
     Active Substance: PALBOCICLIB
     Indication: HEPATOCELLULAR CARCINOMA
  5. IBRANCE [Suspect]
     Active Substance: PALBOCICLIB
     Indication: BREAST CANCER FEMALE
     Dosage: 75 MG, ALTERNATE DAY
     Route: 048
  6. XGEVA [Suspect]
     Active Substance: DENOSUMAB
     Indication: HEPATOCELLULAR CARCINOMA
     Dosage: UNK, MONTHLY

REACTIONS (3)
  - Anaemia [Unknown]
  - Asthenia [Unknown]
  - Nausea [Unknown]
